FAERS Safety Report 12326460 (Version 6)
Quarter: 2017Q4

REPORT INFORMATION
  Report Type: Report from Study
  Country: PA (occurrence: PA)
  Receive Date: 20160503
  Receipt Date: 20171102
  Transmission Date: 20180320
  Serious: Yes (Hospitalization, Other)
  Sender: FDA-Public Use
  Company Number: PHHY2016PA059777

PATIENT
  Sex: Female
  Weight: 65 kg

DRUGS (7)
  1. EXJADE [Suspect]
     Active Substance: DEFERASIROX
     Dosage: 500 MG, QID
     Route: 048
  2. BETAMETHASONE. [Concomitant]
     Active Substance: BETAMETHASONE
     Indication: PRODUCT USED FOR UNKNOWN INDICATION
     Dosage: UNK
     Route: 065
  3. EXJADE [Suspect]
     Active Substance: DEFERASIROX
     Indication: SICKLE CELL ANAEMIA
     Dosage: UNK
     Route: 048
  4. SINGULAIR [Concomitant]
     Active Substance: MONTELUKAST SODIUM
     Indication: PRODUCT USED FOR UNKNOWN INDICATION
     Dosage: UNK
     Route: 065
  5. EXJADE [Suspect]
     Active Substance: DEFERASIROX
     Dosage: 1000 MG, UNK
     Route: 048
  6. SALBUTAMOL [Concomitant]
     Active Substance: ALBUTEROL
     Indication: PRODUCT USED FOR UNKNOWN INDICATION
     Dosage: UNK
     Route: 065
  7. MONTELUKAST [Concomitant]
     Active Substance: MONTELUKAST SODIUM
     Indication: PRODUCT USED FOR UNKNOWN INDICATION
     Dosage: UNK
     Route: 065

REACTIONS (12)
  - Sickle cell anaemia with crisis [Unknown]
  - Pneumonia [Unknown]
  - Chest pain [Unknown]
  - Pain in extremity [Unknown]
  - Serum ferritin increased [Unknown]
  - Thoracic outlet syndrome [Unknown]
  - Abdominal pain [Unknown]
  - Swelling [Unknown]
  - Inflammation [Unknown]
  - Back pain [Unknown]
  - Pleural effusion [Unknown]
  - Headache [Recovering/Resolving]
